FAERS Safety Report 4983007-5 (Version None)
Quarter: 2006Q2

REPORT INFORMATION
  Report Type: 
  Country: None (occurrence: None)
  Receive Date: 20060420
  Receipt Date: 20060408
  Transmission Date: 20061013
  Serious: Yes (Hospitalization, Other)
  Sender: FDA-Public Use
  Company Number: 2006049276

PATIENT
  Age: 8 Year
  Sex: Male

DRUGS (21)
  1. ZYVOX [Suspect]
     Indication: STAPHYLOCOCCAL INFECTION
     Dosage: SEE IMAGE
     Route: 048
     Dates: start: 20030807, end: 20030808
  2. ZYVOX [Suspect]
     Indication: STAPHYLOCOCCAL INFECTION
     Dosage: SEE IMAGE
     Route: 048
     Dates: end: 20040909
  3. ZYVOX [Suspect]
     Indication: STAPHYLOCOCCAL INFECTION
     Dosage: SEE IMAGE
     Route: 048
     Dates: start: 20020208
  4. ZYVOX [Suspect]
     Indication: STAPHYLOCOCCAL INFECTION
     Dosage: SEE IMAGE
     Route: 048
     Dates: start: 20040824
  5. PHENOBARBITAL TAB [Concomitant]
  6. DILANTIN [Concomitant]
  7. DEPAKENE [Concomitant]
  8. ZONEGRAN [Concomitant]
  9. ACIDOPHILUS (LACTOBACILLUS ACIDOPHILUS) [Concomitant]
  10. ZYRTEC [Concomitant]
  11. PROTONIX [Concomitant]
  12. ZITHROMAX [Concomitant]
  13. KLONOPIN [Concomitant]
  14. SYNTHROID [Concomitant]
  15. MULTIVITAMIN [Concomitant]
  16. MELATONIN (MELATONIN) [Concomitant]
  17. ROCALTROL [Concomitant]
  18. KEPPRA [Concomitant]
  19. CALCIUM (CALCIUM) [Concomitant]
  20. SODIUM FLUORIDE      (SODIUM FLUORIDE) [Concomitant]
  21. ALL OTHER NON-THERAPEUTIC PRODUCTS [Concomitant]

REACTIONS (5)
  - ADRENAL INSUFFICIENCY [None]
  - CONVULSION [None]
  - GROWTH ACCELERATED [None]
  - MALAISE [None]
  - WEIGHT INCREASED [None]
